FAERS Safety Report 17654001 (Version 1)
Quarter: 2020Q2

REPORT INFORMATION
  Report Type: Report from Study
  Country: None (occurrence: US)
  Receive Date: 20200410
  Receipt Date: 20200410
  Transmission Date: 20200713
  Serious: Yes (Other)
  Sender: FDA-Public Use
  Company Number: US-ABBVIE-20K-163-3358083-00

PATIENT
  Sex: Male

DRUGS (1)
  1. HUMIRA [Suspect]
     Active Substance: ADALIMUMAB
     Indication: CROHN^S DISEASE
     Dosage: CITRATE FREE
     Route: 058

REACTIONS (10)
  - Erythema [Recovered/Resolved]
  - Pyrexia [Unknown]
  - Abdominal distension [Unknown]
  - Bronchitis [Recovered/Resolved]
  - Therapeutic response shortened [Unknown]
  - Loss of consciousness [Unknown]
  - Abdominal pain [Unknown]
  - Nausea [Unknown]
  - Crohn^s disease [Recovered/Resolved with Sequelae]
  - Decreased appetite [Unknown]

NARRATIVE: CASE EVENT DATE: 2020
